FAERS Safety Report 12559508 (Version 1)
Quarter: 2016Q3

REPORT INFORMATION
  Report Type: Spontaneous
  Country: US (occurrence: US)
  Receive Date: 20160715
  Receipt Date: 20160715
  Transmission Date: 20161109
  Serious: No
  Sender: FDA-Public Use
  Company Number: US-PFIZER INC-2016311937

PATIENT
  Age: 47 Year
  Sex: Female
  Weight: 54.43 kg

DRUGS (7)
  1. PROPRANOLOL [Concomitant]
     Active Substance: PROPRANOLOL\PROPRANOLOL HYDROCHLORIDE
     Indication: DEPRESSION
     Dosage: 10 MG, 3X/DAY (10MG, THREE TIMES A DAY, TABLET)
     Route: 048
     Dates: start: 2016
  2. HALDOL [Concomitant]
     Active Substance: HALOPERIDOL
     Indication: DEPRESSION
     Dosage: 20 MG, 3X/DAY(20MG, THREE TIMES A DAY, TABLET)
     Route: 048
     Dates: start: 2016, end: 201606
  3. ADVIL PM [Suspect]
     Active Substance: DIPHENHYDRAMINE CITRATE\IBUPROFEN
  4. ALEVE [Suspect]
     Active Substance: NAPROXEN SODIUM
     Indication: ARTHRITIS
     Dosage: 2 DF, UNK (TOOK TWO TABLETS, ONE TIME DOSE)
     Route: 048
     Dates: start: 2012
  5. HYDROCODONE [Concomitant]
     Active Substance: HYDROCODONE
     Indication: PAIN
     Dosage: 10/325 MO, TABLET, EVERY 6 HOURS AS NEEDED
     Route: 048
     Dates: start: 2014
  6. PRILOSEC [Concomitant]
     Active Substance: OMEPRAZOLE MAGNESIUM
     Indication: DYSPEPSIA
     Dosage: 20 MG, 2X/DAY(20MG, TWICE A DAY, CAPSULE)
     Route: 048
     Dates: start: 2014
  7. MIRTAZAPINE. [Concomitant]
     Active Substance: MIRTAZAPINE
     Indication: SLEEP DISORDER
     Dosage: 15 MG, 1X/DAY(15MG, ONCE AT NIGHT, TABLET)
     Route: 048
     Dates: start: 2016

REACTIONS (4)
  - Wrong drug administered [Unknown]
  - Pruritus [Unknown]
  - Contusion [Unknown]
  - Urticaria [Recovering/Resolving]

NARRATIVE: CASE EVENT DATE: 20160620
